FAERS Safety Report 17654273 (Version 1)
Quarter: 2020Q2

REPORT INFORMATION
  Report Type: Spontaneous
  Country: US (occurrence: US)
  Receive Date: 20200410
  Receipt Date: 20200410
  Transmission Date: 20200713
  Serious: No
  Sender: FDA-Public Use
  Company Number: US-TEVA-2020-US-1220120

PATIENT
  Age: 22 Year
  Sex: Female
  Weight: 102.06 kg

DRUGS (8)
  1. CELEBREX [Concomitant]
     Active Substance: CELECOXIB
  2. AJOVY [Suspect]
     Active Substance: FREMANEZUMAB-VFRM
     Indication: MIGRAINE
     Route: 065
     Dates: start: 202003
  3. OMEPRAZOLE. [Concomitant]
     Active Substance: OMEPRAZOLE
  4. ZYRTEC [Concomitant]
     Active Substance: CETIRIZINE HYDROCHLORIDE
  5. ARMODAFINIL. [Concomitant]
     Active Substance: ARMODAFINIL
  6. LYRICA [Concomitant]
     Active Substance: PREGABALIN
  7. SIMPONI [Concomitant]
     Active Substance: GOLIMUMAB
  8. PROPRANOLOL [Concomitant]
     Active Substance: PROPRANOLOL HYDROCHLORIDE

REACTIONS (2)
  - Injection site extravasation [Recovering/Resolving]
  - Injection site cyst [Recovering/Resolving]

NARRATIVE: CASE EVENT DATE: 20200402
